FAERS Safety Report 4661133-8 (Version None)
Quarter: 2005Q2

REPORT INFORMATION
  Report Type: 
  Country: None (occurrence: None)
  Receive Date: 20050511
  Receipt Date: 20050429
  Transmission Date: 20051028
  Serious: Yes (Hospitalization)
  Sender: FDA-Public Use
  Company Number: 2005067781

PATIENT
  Age: 33 Year
  Sex: Female

DRUGS (7)
  1. FLUCONAZOLE [Suspect]
     Indication: ILL-DEFINED DISORDER
     Dosage: 400 MG
  2. EFAVIRENZ (EFAVIRENZ) [Suspect]
     Indication: HIV TEST POSITIVE
     Dosage: 600 MG
  3. LOPINAVIR (LOPINAVIR) [Concomitant]
  4. RITONAVIR (RITONAVIR) [Concomitant]
  5. TENOFOVIR (TENOFOVIR) [Concomitant]
  6. TRIMETHOPRIM [Concomitant]
  7. SULFAMETHOXAZOLE [Concomitant]

REACTIONS (8)
  - ACUTE PSYCHOSIS [None]
  - AGGRESSION [None]
  - CONFUSIONAL STATE [None]
  - DEPRESSION [None]
  - DRUG INTERACTION [None]
  - DRUG TOXICITY [None]
  - HEPATIC FUNCTION ABNORMAL [None]
  - SUICIDAL IDEATION [None]
